FAERS Safety Report 5670075-0 (Version None)
Quarter: 2008Q1

REPORT INFORMATION
  Report Type: 
  Country: None (occurrence: None)
  Receive Date: 20080312
  Receipt Date: 20080226
  Transmission Date: 20080703
  Serious: Yes (Hospitalization)
  Sender: FDA-Public Use
  Company Number: 2008000427

PATIENT
  Age: 80 Year
  Sex: Male

DRUGS (6)
  1. ERLOTINIB (ERLOTINIB HCL) (TABLET) (ERLOTINIB HCL) [Suspect]
     Indication: LUNG ADENOCARCINOMA
     Dosage: 150 MG, QD; ORAL
     Route: 048
     Dates: start: 20080205, end: 20080213
  2. VOLTAREN [Suspect]
     Dosage: 50 MG, QD; RECTAL
     Route: 054
     Dates: start: 20080131
  3. MUCOSTA (REBAMIPIDE) [Concomitant]
  4. GABAPEN [Concomitant]
  5. LOPERAMIDE HCL [Concomitant]
  6. LANSOPRAZOLE [Concomitant]

REACTIONS (7)
  - CEREBRAL INFARCTION [None]
  - CEREBRAL ISCHAEMIA [None]
  - CONDITION AGGRAVATED [None]
  - DELIRIUM [None]
  - DIARRHOEA [None]
  - DISSEMINATED INTRAVASCULAR COAGULATION [None]
  - METASTASES TO BONE [None]
